FAERS Safety Report 7543752-4 (Version None)
Quarter: 2011Q2

REPORT INFORMATION
  Report Type: 
  Country: None (occurrence: None)
  Receive Date: 20110613
  Receipt Date: 20040827
  Transmission Date: 20111010
  Serious: Yes (Other)
  Sender: FDA-Public Use
  Company Number: PHHO2004JP09802

PATIENT
  Sex: Male
  Weight: 70 kg

DRUGS (4)
  1. DIOVAN [Suspect]
     Indication: HYPERTENSION
     Dosage: 80 MG, QD
     Route: 048
     Dates: start: 20030403, end: 20030414
  2. GLIMICRON [Concomitant]
  3. NORVASC [Concomitant]
  4. TRICHLORMETHIAZIDE [Concomitant]

REACTIONS (2)
  - FALL [None]
  - VOMITING [None]
